FAERS Safety Report 13303963 (Version 1)
Quarter: 2017Q1

REPORT INFORMATION
  Report Type: Report from Study
  Country: None (occurrence: US)
  Receive Date: 20170307
  Receipt Date: 20170307
  Transmission Date: 20170428
  Serious: Yes (Hospitalization)
  Sender: FDA-Public Use
  Company Number: US-ABBVIE-17K-163-1892591-00

PATIENT
  Age: 15 Year
  Sex: Female

DRUGS (1)
  1. HUMIRA [Suspect]
     Active Substance: ADALIMUMAB
     Indication: CROHN^S DISEASE
     Route: 058
     Dates: start: 20170101, end: 20170227

REACTIONS (10)
  - Vomiting [Unknown]
  - Drug ineffective [Unknown]
  - Intestinal resection [Unknown]
  - Decreased appetite [Unknown]
  - Insomnia [Unknown]
  - Activities of daily living impaired [Unknown]
  - Malaise [Unknown]
  - Dyspnoea [Unknown]
  - Abdominal pain [Unknown]
  - Diarrhoea [Unknown]

NARRATIVE: CASE EVENT DATE: 201701
